FAERS Safety Report 8557867-5 (Version None)
Quarter: 2012Q3

REPORT INFORMATION
  Report Type: 
  Country: None (occurrence: None)
  Receive Date: 20120801
  Receipt Date: 20120726
  Transmission Date: 20120928
  Serious: Yes (Hospitalization)
  Sender: FDA-Public Use
  Company Number: JP-GLAXOSMITHKLINE-B0818843A

PATIENT
  Sex: Female

DRUGS (4)
  1. LAMICTAL [Suspect]
     Dosage: 25MG PER DAY
     Route: 048
     Dates: start: 20120709, end: 20120717
  2. DEPAKENE [Concomitant]
     Route: 048
  3. CYMBALTA [Concomitant]
     Route: 048
  4. LAMICTAL [Suspect]
     Indication: BIPOLAR DISORDER
     Dosage: 25MG ALTERNATE DAYS
     Route: 048
     Dates: start: 20120621, end: 20120708

REACTIONS (5)
  - RUBELLA [None]
  - GENERALISED ERYTHEMA [None]
  - DRUG ERUPTION [None]
  - MEASLES [None]
  - HERPES ZOSTER [None]
